FAERS Safety Report 16057989 (Version 2)
Quarter: 2020Q3

REPORT INFORMATION
  Report Type: Report from Study
  Country: CA (occurrence: CA)
  Receive Date: 20190311
  Receipt Date: 20200708
  Transmission Date: 20201102
  Serious: Yes (Other)
  Sender: FDA-Public Use
  Company Number: PHHY2019CA048514

PATIENT
  Age: 38 Year
  Sex: Female

DRUGS (1)
  1. KISQALI [Suspect]
     Active Substance: RIBOCICLIB
     Indication: BREAST CANCER METASTATIC
     Dosage: UNK
     Route: 048
     Dates: start: 20180908

REACTIONS (9)
  - Full blood count abnormal [Unknown]
  - Splenic cyst [Unknown]
  - Malignant neoplasm progression [Not Recovered/Not Resolved]
  - Metastases to pleura [Recovering/Resolving]
  - Infectious pleural effusion [Recovering/Resolving]
  - Metastases to bone [Not Recovered/Not Resolved]
  - Pleural effusion [Recovered/Resolved]
  - Metastases to liver [Unknown]
  - Intervertebral disc compression [Unknown]

NARRATIVE: CASE EVENT DATE: 20181213
